FAERS Safety Report 20238579 (Version 1)
Quarter: 2021Q4

REPORT INFORMATION
  Report Type: Spontaneous
  Country: GR (occurrence: None)
  Receive Date: 20211228
  Receipt Date: 20211228
  Transmission Date: 20220303
  Serious: Yes (Other)
  Sender: FDA-Public Use
  Company Number: GR-Covis Pharma GmbH-2021COV25084

PATIENT

DRUGS (1)
  1. RILUTEK [Suspect]
     Active Substance: RILUZOLE
     Indication: Product used for unknown indication
     Route: 048

REACTIONS (2)
  - Amyotrophic lateral sclerosis [Unknown]
  - Product availability issue [Unknown]
